FAERS Safety Report 5277929-8 (Version None)
Quarter: 2007Q1

REPORT INFORMATION
  Report Type: 
  Country: None (occurrence: None)
  Receive Date: 20070327
  Receipt Date: 20070315
  Transmission Date: 20070707
  Serious: No
  Sender: FDA-Public Use
  Company Number: JP-PFIZER INC-2007023196

PATIENT
  Sex: Female
  Weight: 55 kg

DRUGS (3)
  1. IRINOTECAN HCL [Suspect]
     Indication: RECTAL CANCER
     Route: 042
     Dates: start: 20030528, end: 20030528
  2. IRINOTECAN HCL [Suspect]
     Route: 042
     Dates: start: 20030602, end: 20030602
  3. UFT [Concomitant]
     Route: 048
     Dates: start: 20030530, end: 20030611

REACTIONS (2)
  - ENTEROCOLITIS [None]
  - SMALL INTESTINAL STENOSIS [None]
